FAERS Safety Report 7364459-2 (Version None)
Quarter: 2011Q1

REPORT INFORMATION
  Report Type: 
  Country: None (occurrence: None)
  Receive Date: 20110321
  Receipt Date: 20110316
  Transmission Date: 20110831
  Serious: Yes (Other)
  Sender: FDA-Public Use
  Company Number: US-PFIZER INC-2011058345

PATIENT
  Sex: Female
  Weight: 95.238 kg

DRUGS (6)
  1. VENTOLIN [Concomitant]
     Indication: ASTHMA
     Dosage: 18 MG, EVERY 6 HOURS
     Route: 048
  2. DEXILANT [Concomitant]
     Indication: GASTRIC DISORDER
     Dosage: UNK
     Route: 048
  3. PROMETHAZINE [Concomitant]
     Indication: NAUSEA
     Dosage: 25 MG, 3X/DAY
     Route: 048
  4. LYRICA [Suspect]
     Indication: PROCEDURAL PAIN
     Dosage: 600 MG, EVERY 4 TO 6 HOURS AS NEEDED
     Route: 048
     Dates: start: 20100101, end: 20101201
  5. PRISTIQ [Concomitant]
     Indication: DEPRESSION
     Dosage: 100 MG, 1X/DAY
     Route: 048
  6. TRIBENZOR [Concomitant]
     Indication: BLOOD PRESSURE ABNORMAL
     Dosage: 10-40-25, MG, 3X/DAY
     Route: 048

REACTIONS (1)
  - JOINT SWELLING [None]
